FAERS Safety Report 23329407 (Version 3)
Quarter: 2024Q1

REPORT INFORMATION
  Report Type: Spontaneous
  Country: DE (occurrence: DE)
  Receive Date: 20231222
  Receipt Date: 20240201
  Transmission Date: 20240410
  Serious: Yes (Death, Other)
  Sender: FDA-Public Use
  Company Number: DE-HALEON-DECH2023HLN065331

PATIENT

DRUGS (1)
  1. SCOPOLAMINE [Suspect]
     Active Substance: SCOPOLAMINE
     Indication: Dysphagia
     Dosage: UNK
     Route: 065

REACTIONS (6)
  - Death [Fatal]
  - Infection susceptibility increased [Unknown]
  - Dyspnoea [Unknown]
  - Speech disorder [Unknown]
  - Therapeutic response unexpected [Unknown]
  - Product availability issue [Unknown]
